FAERS Safety Report 8894137 (Version 1)
Quarter: 2012Q4

REPORT INFORMATION
  Report Type: 
  Country: US (occurrence: US)
  Receive Date: 20121108
  Receipt Date: 20121108
  Transmission Date: 20130627
  Serious: Yes (Death, Other)
  Sender: FDA-Public Use
  Company Number: US-PFIZER INC-2012277112

PATIENT
  Age: 66 Year
  Sex: Female

DRUGS (1)
  1. VFEND [Suspect]
     Dosage: 1.5 DF, 2x/day

REACTIONS (1)
  - Acute myeloid leukaemia [Fatal]
